FAERS Safety Report 10720914 (Version 1)
Quarter: 2015Q1

REPORT INFORMATION
  Report Type: Spontaneous
  Country: US (occurrence: US)
  Receive Date: 20150119
  Receipt Date: 20150119
  Transmission Date: 20150721
  Serious: No
  Sender: FDA-Public Use
  Company Number: US-UNITED THERAPEUTICS-UNT-2014-006430

PATIENT
  Sex: Female
  Weight: 60.77 kg

DRUGS (1)
  1. REMODULIN [Suspect]
     Active Substance: TREPROSTINIL
     Indication: PULMONARY HYPERTENSION
     Dosage: 0.059 ?G/KG/MIN, CONTINUING
     Route: 041
     Dates: start: 20140519

REACTIONS (3)
  - Injection site erythema [Not Recovered/Not Resolved]
  - Dermatitis contact [Unknown]
  - Injection site pruritus [Not Recovered/Not Resolved]

NARRATIVE: CASE EVENT DATE: 2014
